FAERS Safety Report 9716000 (Version 1)
Quarter: 2013Q4

REPORT INFORMATION
  Report Type: Spontaneous
  Country: US (occurrence: None)
  Receive Date: 20131126
  Receipt Date: 20131126
  Transmission Date: 20140711
  Serious: No
  Sender: FDA-Public Use
  Company Number: None

PATIENT
  Age: 72 Year
  Sex: Male

DRUGS (5)
  1. ELIQUIS [Suspect]
     Indication: ATRIAL FIBRILLATION
     Dates: start: 201308, end: 20131120
  2. METFORMIN [Concomitant]
  3. NOVALOG [Concomitant]
  4. LANTIS [Concomitant]
  5. OMEGA 3 [Concomitant]

REACTIONS (4)
  - Diabetic retinopathy [None]
  - Condition aggravated [None]
  - Macular oedema [None]
  - Visual acuity reduced [None]
